FAERS Safety Report 16854437 (Version 1)
Quarter: 2019Q3

REPORT INFORMATION
  Report Type: Spontaneous
  Country: US (occurrence: US)
  Receive Date: 20190805
  Receipt Date: 20190805
  Transmission Date: 20191005
  Serious: No
  Sender: FDA-Public Use
  Company Number: None

PATIENT
  Age: 93 Year
  Sex: Female

DRUGS (1)
  1. PROCRIT [Suspect]
     Active Substance: ERYTHROPOIETIN
     Indication: ANAEMIA
     Dosage: ?          OTHER STRENGTH:40,000U/ML;?
     Route: 058
     Dates: start: 20181206

REACTIONS (2)
  - Vascular rupture [None]
  - Contusion [None]

NARRATIVE: CASE EVENT DATE: 20190202
